APPROVED DRUG PRODUCT: PREGABALIN
Active Ingredient: PREGABALIN
Strength: 165MG
Dosage Form/Route: TABLET, EXTENDED RELEASE;ORAL
Application: A211967 | Product #001
Applicant: PHARMOBEDIENT CONSULTING LLC
Approved: Nov 4, 2021 | RLD: No | RS: No | Type: DISCN